FAERS Safety Report 21174216 (Version 3)
Quarter: 2022Q3

REPORT INFORMATION
  Report Type: Spontaneous
  Country: TR (occurrence: TR)
  Receive Date: 20220804
  Receipt Date: 20220912
  Transmission Date: 20221027
  Serious: No
  Sender: FDA-Public Use
  Company Number: TR-ALLERGAN-2221001US

PATIENT
  Age: 60 Year
  Sex: Female

DRUGS (1)
  1. OZURDEX [Suspect]
     Active Substance: DEXAMETHASONE
     Indication: Retinal vein occlusion
     Dosage: 0.7 MG, SINGLE
     Route: 031
     Dates: start: 20220624, end: 20220624

REACTIONS (1)
  - Product delivery mechanism issue [Unknown]

NARRATIVE: CASE EVENT DATE: 20220624
